FAERS Safety Report 9791454 (Version 1)
Quarter: 2014Q1

REPORT INFORMATION
  Report Type: Spontaneous
  Country: IT (occurrence: IT)
  Receive Date: 20140101
  Receipt Date: 20140101
  Transmission Date: 20141002
  Serious: Yes (Disabling)
  Sender: FDA-Public Use
  Company Number: PHHY2013IT153465

PATIENT
  Sex: Female

DRUGS (7)
  1. ZOMETA [Suspect]
     Indication: BREAST CANCER METASTATIC
     Dosage: UNK UKN, UNK
     Route: 042
     Dates: start: 20040601, end: 20100501
  2. LETROZOLE [Concomitant]
     Dosage: UNK UKN, UNK
     Dates: start: 200406, end: 201005
  3. EXEMESTANE [Concomitant]
     Dosage: UNK UKN, UNK
     Dates: start: 201306
  4. METHOTREXATE [Concomitant]
     Dosage: UNK UKN, UNK
     Dates: start: 201011, end: 201312
  5. CYCLOPHOSPHAMIDE [Concomitant]
     Dosage: UNK UKN, UNK
     Dates: start: 201011, end: 201312
  6. CAPECITABINE [Concomitant]
     Dosage: UNK UKN, UNK
  7. VINORELBINE [Concomitant]
     Dosage: UNK UKN, UNK

REACTIONS (1)
  - Osteonecrosis of jaw [Unknown]
